FAERS Safety Report 7962055-7 (Version None)
Quarter: 2011Q4

REPORT INFORMATION
  Report Type: 
  Country: None (occurrence: None)
  Receive Date: 20111207
  Receipt Date: 20111205
  Transmission Date: 20120403
  Serious: No
  Sender: FDA-Public Use
  Company Number: US-PFIZER INC-2011297534

PATIENT
  Age: 50 Year
  Sex: Male

DRUGS (2)
  1. LYRICA [Suspect]
     Indication: BONE PAIN
     Dosage: 100 MG, 3X/DAY
     Route: 048
     Dates: start: 20111101
  2. CENTRUM 50 PLUS [Concomitant]
     Dosage: UNK

REACTIONS (1)
  - SOMNOLENCE [None]
